FAERS Safety Report 8233146-0 (Version None)
Quarter: 2012Q1

REPORT INFORMATION
  Report Type: 
  Country: None (occurrence: None)
  Receive Date: 20120326
  Receipt Date: 20120320
  Transmission Date: 20120608
  Serious: No
  Sender: FDA-Public Use
  Company Number: US-PFIZER INC-2012072786

PATIENT
  Sex: Female
  Weight: 54.422 kg

DRUGS (6)
  1. PROCARDIA XL [Suspect]
     Indication: ATRIOVENTRICULAR BLOCK
     Dosage: 30 MG, UNK
     Route: 048
     Dates: start: 19880101
  2. NIFEDIPINE [Suspect]
     Indication: ATRIOVENTRICULAR BLOCK
     Dosage: 30 MG, 1X/DAY
     Route: 048
     Dates: start: 20090101, end: 20100101
  3. PROCARDIA XL [Suspect]
     Dosage: UNK
     Dates: end: 20090101
  4. MOEXIPRIL [Concomitant]
     Dosage: 25 MG, 1X/DAY
  5. OCUVITE LUTEIN [Concomitant]
     Dosage: UNK
  6. NORVASC [Suspect]
     Indication: ATRIOVENTRICULAR BLOCK
     Dosage: 2.5 MG, UNK
     Route: 048

REACTIONS (4)
  - MALAISE [None]
  - ASTHENIA [None]
  - BLOOD DISORDER [None]
  - DRUG INEFFECTIVE [None]
